FAERS Safety Report 6853656-8 (Version None)
Quarter: 2010Q3

REPORT INFORMATION
  Report Type: 
  Country: None (occurrence: None)
  Receive Date: 20100717
  Receipt Date: 20071217
  Transmission Date: 20110219
  Serious: No
  Sender: FDA-Public Use
  Company Number: US-PFIZER INC-2007104039

PATIENT
  Sex: Female
  Weight: 79.8 kg

DRUGS (7)
  1. CHANTIX [Suspect]
     Indication: SMOKING CESSATION THERAPY
     Dates: start: 20071001, end: 20071215
  2. RISPERIDONE [Concomitant]
  3. LISINOPRIL [Concomitant]
  4. HYDROCODONE [Concomitant]
  5. LORAZEPAM [Concomitant]
  6. VICODIN [Concomitant]
  7. AMBIEN [Concomitant]

REACTIONS (11)
  - ABNORMAL DREAMS [None]
  - COUGH [None]
  - DEPRESSION [None]
  - DYSGEUSIA [None]
  - FLATULENCE [None]
  - INSOMNIA [None]
  - MUSCLE TWITCHING [None]
  - NAUSEA [None]
  - STRESS [None]
  - UNEVALUABLE EVENT [None]
  - VOMITING [None]
